FAERS Safety Report 4986226-7 (Version None)
Quarter: 2006Q2

REPORT INFORMATION
  Report Type: 
  Country: None (occurrence: None)
  Receive Date: 20060428
  Receipt Date: 20051021
  Transmission Date: 20061013
  Serious: Yes (Death, Hospitalization, Other)
  Sender: FDA-Public Use
  Company Number: US-MERCK-0510USA08792

PATIENT
  Age: 64 Year
  Sex: Female
  Weight: 55 kg

DRUGS (17)
  1. VIOXX [Suspect]
     Indication: ARTHRITIS
     Route: 048
     Dates: start: 20010629, end: 20040417
  2. ASPIRIN [Concomitant]
     Route: 065
  3. CELEBREX [Concomitant]
     Route: 065
  4. METFORMIN [Concomitant]
     Route: 065
  5. PREMARIN [Concomitant]
     Route: 065
  6. ZESTORETIC [Concomitant]
     Route: 048
  7. PREVACID [Concomitant]
     Route: 065
  8. NAPROXEN [Concomitant]
     Route: 065
  9. NOVOLIN [Concomitant]
     Indication: DIABETES MELLITUS
     Route: 065
  10. NORVASC [Concomitant]
     Route: 065
  11. NITROGEN [Concomitant]
     Route: 065
  12. FUROSEMIDE [Concomitant]
     Route: 065
  13. CARDIZEM [Concomitant]
     Route: 065
  14. DILTIAZEM HYDROCHLORIDE [Concomitant]
     Route: 065
  15. LORAZEPAM [Concomitant]
     Route: 065
  16. METOPROLOL [Concomitant]
     Route: 065
  17. ZETIA [Concomitant]
     Route: 048

REACTIONS (12)
  - ADVERSE EVENT [None]
  - CEREBROVASCULAR ACCIDENT [None]
  - FAECAL INCONTINENCE [None]
  - GASTRIC DISORDER [None]
  - MENTAL STATUS CHANGES [None]
  - METASTASES TO CENTRAL NERVOUS SYSTEM [None]
  - METASTASES TO LIVER [None]
  - MYOCARDIAL INFARCTION [None]
  - NEOPLASM MALIGNANT [None]
  - ORAL INTAKE REDUCED [None]
  - PAIN [None]
  - URINARY INCONTINENCE [None]
